FAERS Safety Report 22054461 (Version 6)
Quarter: 2023Q4

REPORT INFORMATION
  Report Type: Report from Study
  Country: MA (occurrence: MA)
  Receive Date: 20230302
  Receipt Date: 20231109
  Transmission Date: 20240110
  Serious: Yes (Hospitalization, Other)
  Sender: FDA-Public Use
  Company Number: MA-002147023-NVSC2023MA042673

PATIENT
  Sex: Male

DRUGS (2)
  1. COSENTYX [Suspect]
     Active Substance: SECUKINUMAB
     Indication: Psoriasis
     Dosage: 300 MG, QMO
     Route: 058
     Dates: start: 20230127
  2. COSENTYX [Suspect]
     Active Substance: SECUKINUMAB
     Dosage: UNK (6TH INJECTION)
     Route: 065

REACTIONS (18)
  - Psoriasis [Not Recovered/Not Resolved]
  - Skin fissures [Not Recovered/Not Resolved]
  - Gait disturbance [Unknown]
  - Dry skin [Not Recovered/Not Resolved]
  - Hepatitis viral [Unknown]
  - Urinary tract infection [Unknown]
  - Dysuria [Unknown]
  - Vision blurred [Unknown]
  - Blindness [Unknown]
  - Skin haemorrhage [Unknown]
  - Illness [Unknown]
  - Condition aggravated [Unknown]
  - Dysstasia [Unknown]
  - Hypokinesia [Unknown]
  - Prostatic pain [Unknown]
  - Scar [Unknown]
  - Gait inability [Unknown]
  - Drug ineffective [Unknown]
